FAERS Safety Report 11250679 (Version 1)
Quarter: 2015Q3

REPORT INFORMATION
  Report Type: Spontaneous
  Country: US (occurrence: US)
  Receive Date: 20150708
  Receipt Date: 20150708
  Transmission Date: 20151125
  Serious: Yes (Other)
  Sender: FDA-Public Use
  Company Number: US-ELI_LILLY_AND_COMPANY-US201104005165

PATIENT
  Age: 26 Year
  Sex: Female
  Weight: 54.42 kg

DRUGS (2)
  1. SYMBYAX [Suspect]
     Active Substance: FLUOXETINE HYDROCHLORIDE\OLANZAPINE
     Dosage: 6MG/25MG, QD
  2. SYMBYAX [Suspect]
     Active Substance: FLUOXETINE HYDROCHLORIDE\OLANZAPINE
     Dosage: 3MG/25MG, QD

REACTIONS (3)
  - Syncope [Unknown]
  - Hypersomnia [Unknown]
  - Weight increased [Unknown]
